FAERS Safety Report 7331647-0 (Version None)
Quarter: 2011Q1

REPORT INFORMATION
  Report Type: 
  Country: None (occurrence: None)
  Receive Date: 20110304
  Receipt Date: 20110223
  Transmission Date: 20110831
  Serious: Yes (Hospitalization, Disabling)
  Sender: FDA-Public Use
  Company Number: DE-NOVOPROD-323871

PATIENT
  Age: 39 Year
  Sex: Female
  Weight: 79 kg

DRUGS (3)
  1. NOVOSEVEN [Suspect]
     Route: 042
     Dates: start: 20110203
  2. NOVOSEVEN [Suspect]
     Route: 042
     Dates: start: 20110203
  3. NOVOSEVEN [Suspect]
     Indication: HAEMORRHAGE
     Route: 042
     Dates: start: 20110203

REACTIONS (4)
  - HEMIPARESIS [None]
  - CEREBRAL ISCHAEMIA [None]
  - VISUAL IMPAIRMENT [None]
  - APHONIA [None]
